FAERS Safety Report 8721852 (Version 3)
Quarter: 2013Q2

REPORT INFORMATION
  Report Type: Report from Study
  Country: JP (occurrence: JP)
  Receive Date: 20120814
  Receipt Date: 20130401
  Transmission Date: 20140414
  Serious: Yes (Hospitalization, Other)
  Sender: FDA-Public Use
  Company Number: JP-VERTEX PHARMACEUTICAL INC.-AE-2012-011910

PATIENT
  Age: 68 Year
  Sex: Female

DRUGS (7)
  1. VX-950 (TELAPREVIR) [Suspect]
     Indication: CHRONIC HEPATITIS C
     Dosage: 1500 MG, QD
     Route: 048
     Dates: start: 20120605, end: 20120813
  2. RIBAVIRIN [Suspect]
     Indication: CHRONIC HEPATITIS C
     Dosage: 400 MG, QD
     Route: 048
     Dates: start: 20120605, end: 20120703
  3. RIBAVIRIN [Suspect]
     Dosage: 200 MG, QD
     Route: 048
     Dates: start: 20120704, end: 20120813
  4. PEGINTERFERON ALFA-2B [Suspect]
     Indication: CHRONIC HEPATITIS C
     Dosage: 1.6 ?G/KG, QW
     Route: 058
     Dates: start: 20120605, end: 20120627
  5. PEGINTERFERON ALFA-2B [Suspect]
     Dosage: 1.0 ?G/KG, UNK
     Route: 058
     Dates: start: 20120704, end: 20120813
  6. RESPLEN [Concomitant]
     Dosage: 60 MG, QD
     Route: 048
     Dates: start: 20120711, end: 20120813
  7. MUCODYNE [Concomitant]
     Dosage: 1500 MG, QD
     Route: 048
     Dates: start: 20120711, end: 20120813

REACTIONS (2)
  - White blood cell count decreased [Recovered/Resolved]
  - Erythema multiforme [Recovered/Resolved]
